FAERS Safety Report 7827696-6 (Version None)
Quarter: 2011Q4

REPORT INFORMATION
  Report Type: 
  Country: None (occurrence: None)
  Receive Date: 20111020
  Receipt Date: 20111014
  Transmission Date: 20120403
  Serious: Yes (Other)
  Sender: FDA-Public Use
  Company Number: US-JNJFOC-20111007305

PATIENT
  Sex: Female
  Weight: 60.78 kg

DRUGS (18)
  1. ELAVIL [Concomitant]
     Indication: DEPRESSION
     Route: 048
     Dates: start: 19880101
  2. COREG [Concomitant]
     Indication: HEART RATE INCREASED
     Route: 048
     Dates: start: 20070101
  3. ALBUTEROL [Concomitant]
     Route: 055
  4. LASIX [Concomitant]
     Indication: OEDEMA PERIPHERAL
     Route: 048
  5. CYMBALTA [Concomitant]
     Indication: DEPRESSION
     Route: 048
  6. ATIVAN [Concomitant]
     Indication: NEUROPATHY PERIPHERAL
     Route: 048
  7. PERCOCET [Concomitant]
     Dosage: 7.5/325MG FOUR TIMES DAILY AS NEEDED
     Route: 048
     Dates: start: 20060101
  8. SIMPONI [Suspect]
     Indication: RHEUMATOID ARTHRITIS
     Route: 058
     Dates: start: 20101201
  9. PREDNISONE [Concomitant]
     Indication: LUNG DISORDER
     Route: 048
  10. PREDNISONE [Concomitant]
     Indication: ARTHRITIS
     Route: 048
  11. SYMBICORT [Concomitant]
     Indication: ASTHMA
     Dosage: 2 PUFFS DAILY
     Route: 055
  12. E VITAMIN [Concomitant]
     Route: 048
  13. NEXIUM [Concomitant]
     Indication: GASTROOESOPHAGEAL REFLUX DISEASE
     Route: 048
  14. SYMBICORT [Concomitant]
     Indication: EMPHYSEMA
     Dosage: 2 PUFFS DAILY
     Route: 055
  15. CYCLOBENZAPRINE [Concomitant]
     Indication: MUSCLE RELAXANT THERAPY
     Route: 048
  16. VITAMIN D [Concomitant]
     Route: 048
  17. FERROUS SULFATE TAB [Concomitant]
     Indication: ANAEMIA
     Route: 048
  18. ARAVA [Concomitant]
     Indication: RHEUMATOID ARTHRITIS
     Route: 048
     Dates: start: 20060101

REACTIONS (9)
  - RECTAL PROLAPSE [None]
  - OESOPHAGEAL OBSTRUCTION [None]
  - FAECAL INCONTINENCE [None]
  - DEVICE FAILURE [None]
  - NAUSEA [None]
  - DRUG DOSE OMISSION [None]
  - GASTROOESOPHAGEAL REFLUX DISEASE [None]
  - COUGH [None]
  - ANAEMIA [None]
